FAERS Safety Report 20181232 (Version 2)
Quarter: 2021Q4

REPORT INFORMATION
  Report Type: Spontaneous
  Country: PL (occurrence: PL)
  Receive Date: 20211214
  Receipt Date: 20211230
  Transmission Date: 20220303
  Serious: Yes (Hospitalization, Other)
  Sender: FDA-Public Use
  Company Number: PL-002147023-NVSC2021PL267813

PATIENT
  Age: 71 Year
  Sex: Male

DRUGS (56)
  1. SPIRONOLACTONE [Suspect]
     Active Substance: SPIRONOLACTONE
     Indication: Product used for unknown indication
     Route: 065
     Dates: start: 202101
  2. SPIRONOLACTONE [Suspect]
     Active Substance: SPIRONOLACTONE
     Route: 065
     Dates: start: 201804
  3. SPIRONOLACTONE [Suspect]
     Active Substance: SPIRONOLACTONE
     Route: 065
     Dates: start: 201905
  4. SPIRONOLACTONE [Suspect]
     Active Substance: SPIRONOLACTONE
     Route: 065
     Dates: start: 202103
  5. LEVOTHYROXINE [Suspect]
     Active Substance: LEVOTHYROXINE
     Indication: Product used for unknown indication
     Dosage: UNK, QD (N50)
     Route: 065
  6. LEVOTHYROXINE [Suspect]
     Active Substance: LEVOTHYROXINE
     Dosage: UNK, QD (N50)
     Route: 065
  7. CARVEDILOL [Suspect]
     Active Substance: CARVEDILOL
     Indication: Product used for unknown indication
     Route: 065
     Dates: start: 202103
  8. CARVEDILOL [Suspect]
     Active Substance: CARVEDILOL
     Route: 065
     Dates: start: 202109
  9. CARVEDILOL [Suspect]
     Active Substance: CARVEDILOL
     Route: 065
     Dates: start: 202109
  10. CARVEDILOL [Suspect]
     Active Substance: CARVEDILOL
     Route: 065
  11. CARVEDILOL [Suspect]
     Active Substance: CARVEDILOL
     Route: 065
     Dates: start: 202101
  12. CARVEDILOL [Suspect]
     Active Substance: CARVEDILOL
     Route: 065
     Dates: start: 202107
  13. CARVEDILOL [Suspect]
     Active Substance: CARVEDILOL
     Route: 065
     Dates: start: 201804
  14. CARVEDILOL [Suspect]
     Active Substance: CARVEDILOL
     Route: 065
     Dates: start: 201905
  15. CARVEDILOL [Suspect]
     Active Substance: CARVEDILOL
     Route: 065
  16. JARDIANCE [Suspect]
     Active Substance: EMPAGLIFLOZIN
     Indication: Product used for unknown indication
     Route: 065
     Dates: start: 201804
  17. TORSEMIDE [Suspect]
     Active Substance: TORSEMIDE
     Indication: Product used for unknown indication
     Route: 065
     Dates: start: 202109
  18. TORSEMIDE [Suspect]
     Active Substance: TORSEMIDE
     Route: 065
     Dates: start: 202109
  19. TORSEMIDE [Suspect]
     Active Substance: TORSEMIDE
     Route: 065
     Dates: start: 202107
  20. TORSEMIDE [Suspect]
     Active Substance: TORSEMIDE
     Dosage: 1 TABLET IN THE EVENING
     Route: 065
  21. TORSEMIDE [Suspect]
     Active Substance: TORSEMIDE
     Dosage: 1 TABLET IN THE EVENING
     Route: 065
  22. ATORVASTATIN CALCIUM [Suspect]
     Active Substance: ATORVASTATIN CALCIUM
     Indication: Product used for unknown indication
     Route: 065
  23. ALLOPURINOL [Suspect]
     Active Substance: ALLOPURINOL
     Indication: Product used for unknown indication
     Dosage: UNK
     Route: 065
  24. ALLOPURINOL [Suspect]
     Active Substance: ALLOPURINOL
     Dosage: UNK
     Route: 065
  25. SILDENAFIL CITRATE [Suspect]
     Active Substance: SILDENAFIL CITRATE
     Indication: Product used for unknown indication
     Route: 065
     Dates: start: 201804
  26. SILDENAFIL CITRATE [Suspect]
     Active Substance: SILDENAFIL CITRATE
     Route: 065
     Dates: start: 202101
  27. SILDENAFIL CITRATE [Suspect]
     Active Substance: SILDENAFIL CITRATE
     Route: 065
     Dates: start: 201905
  28. SILDENAFIL CITRATE [Suspect]
     Active Substance: SILDENAFIL CITRATE
     Route: 065
     Dates: start: 202103
  29. HYDROCHLOROTHIAZIDE [Suspect]
     Active Substance: HYDROCHLOROTHIAZIDE
     Indication: Product used for unknown indication
     Dosage: 25 MG, 1X/DAY
     Route: 065
     Dates: start: 202101
  30. HYDROCHLOROTHIAZIDE [Suspect]
     Active Substance: HYDROCHLOROTHIAZIDE
     Dosage: 25 MG, 1X/DAY
     Route: 065
     Dates: start: 201905
  31. HYDROCHLOROTHIAZIDE [Suspect]
     Active Substance: HYDROCHLOROTHIAZIDE
     Dosage: 25 MG, QD
     Route: 065
     Dates: start: 201804
  32. SACUBITRIL\VALSARTAN [Suspect]
     Active Substance: SACUBITRIL\VALSARTAN
     Indication: Cardiac failure
     Dosage: 100 MG, 1X/DAY
     Route: 065
     Dates: start: 202107
  33. SACUBITRIL\VALSARTAN [Suspect]
     Active Substance: SACUBITRIL\VALSARTAN
     Dosage: 200 MG, 1X/DAY
     Route: 065
     Dates: start: 202103
  34. SACUBITRIL\VALSARTAN [Suspect]
     Active Substance: SACUBITRIL\VALSARTAN
     Dosage: 100 MG, QD
     Route: 065
     Dates: start: 201804
  35. SACUBITRIL\VALSARTAN [Suspect]
     Active Substance: SACUBITRIL\VALSARTAN
     Dosage: 0.5 DF, BID (49MG/51MG), 1 AGU/ML
     Route: 065
  36. SACUBITRIL\VALSARTAN [Suspect]
     Active Substance: SACUBITRIL\VALSARTAN
     Dosage: 100 MG, 1X/DAY
     Route: 065
     Dates: start: 202109
  37. SACUBITRIL\VALSARTAN [Suspect]
     Active Substance: SACUBITRIL\VALSARTAN
     Dosage: 100 MG, 1X/DAY
     Route: 065
     Dates: start: 201905
  38. SACUBITRIL\VALSARTAN [Suspect]
     Active Substance: SACUBITRIL\VALSARTAN
     Dosage: 100 MG, 1X/DAY
     Route: 065
     Dates: start: 202109
  39. SACUBITRIL\VALSARTAN [Suspect]
     Active Substance: SACUBITRIL\VALSARTAN
     Dosage: 200 MG, 1X/DAY
     Route: 065
     Dates: start: 202101
  40. SACUBITRIL\VALSARTAN [Suspect]
     Active Substance: SACUBITRIL\VALSARTAN
     Dosage: 0.5 DF, BID (49MG/51MG)
     Route: 065
  41. APIXABAN [Suspect]
     Active Substance: APIXABAN
     Indication: Product used for unknown indication
     Dosage: 5 MG, BID
     Route: 065
  42. APIXABAN [Suspect]
     Active Substance: APIXABAN
     Dosage: 5 MG, BID
     Route: 065
  43. DAPAGLIFLOZIN [Suspect]
     Active Substance: DAPAGLIFLOZIN
     Indication: Product used for unknown indication
     Dosage: 10 MG, QD
     Route: 065
     Dates: start: 202109
  44. DAPAGLIFLOZIN [Suspect]
     Active Substance: DAPAGLIFLOZIN
     Dosage: 10 MG, QD
     Route: 065
     Dates: start: 202107
  45. DAPAGLIFLOZIN [Suspect]
     Active Substance: DAPAGLIFLOZIN
     Dosage: 10 MG, QD
     Route: 065
  46. DAPAGLIFLOZIN [Suspect]
     Active Substance: DAPAGLIFLOZIN
     Dosage: 10 MG, 1X/DAY
     Route: 065
     Dates: start: 202109
  47. DAPAGLIFLOZIN [Suspect]
     Active Substance: DAPAGLIFLOZIN
     Dosage: 10 MG, QD
     Route: 065
  48. DIGOXIN [Suspect]
     Active Substance: DIGOXIN
     Indication: Product used for unknown indication
     Dosage: 0.1 MG, QD
     Route: 065
  49. FUROSEMIDE [Suspect]
     Active Substance: FUROSEMIDE
     Indication: Product used for unknown indication
     Dosage: 40 UNK
     Route: 065
     Dates: start: 202107
  50. FUROSEMIDE [Suspect]
     Active Substance: FUROSEMIDE
     Dosage: 40 MG, QD (1 TABLET IN THE MORNING)
     Route: 065
  51. FUROSEMIDE [Suspect]
     Active Substance: FUROSEMIDE
     Dosage: 40 UNK
     Route: 065
     Dates: start: 202109
  52. FUROSEMIDE [Suspect]
     Active Substance: FUROSEMIDE
     Dosage: 40 UNK
     Route: 065
     Dates: start: 202109
  53. FUROSEMIDE [Suspect]
     Active Substance: FUROSEMIDE
     Dosage: 200 UNK
     Route: 065
     Dates: start: 201905
  54. FUROSEMIDE [Suspect]
     Active Substance: FUROSEMIDE
     Dosage: 120 MG, QD
     Route: 065
     Dates: start: 201804
  55. FUROSEMIDE [Suspect]
     Active Substance: FUROSEMIDE
     Dosage: 160 UNK
     Route: 065
     Dates: start: 202101
  56. FUROSEMIDE [Suspect]
     Active Substance: FUROSEMIDE
     Dosage: 80 UNK
     Route: 065
     Dates: start: 202103

REACTIONS (7)
  - Acute kidney injury [Unknown]
  - Glomerular filtration rate abnormal [Unknown]
  - Congestive cardiomyopathy [Unknown]
  - Cardiac failure [Unknown]
  - Lung disorder [Unknown]
  - Wrong technique in product usage process [Unknown]
  - N-terminal prohormone brain natriuretic peptide increased [Unknown]

NARRATIVE: CASE EVENT DATE: 20210301
